FAERS Safety Report 24084912 (Version 1)
Quarter: 2024Q3

REPORT INFORMATION
  Report Type: Spontaneous
  Country: BE (occurrence: BE)
  Receive Date: 20240712
  Receipt Date: 20240712
  Transmission Date: 20241016
  Serious: No
  Sender: PIERRE FABRE MEDICAMENT
  Company Number: BE-TEVA-2021-BE-1876982

PATIENT
  Age: 56 Year
  Sex: Female

DRUGS (4)
  1. PROPRANOLOL [Suspect]
     Active Substance: PROPRANOLOL HYDROCHLORIDE
     Indication: Migraine
     Dosage: 80 MG, QD (1/DAY), DAILY
     Route: 048
     Dates: start: 20201119, end: 20210128
  2. GLUTEN [Concomitant]
     Active Substance: WHEAT GLUTEN
     Indication: Functional gastrointestinal disorder
     Dosage: 3 DF, QD (1/DAY), DAILY
     Route: 065
  3. SUMATRIPTAN [Concomitant]
     Active Substance: SUMATRIPTAN
     Indication: Migraine
     Dosage: 100 MG, AS NEEDED
     Route: 048
  4. GLUTAMINE [Concomitant]
     Active Substance: GLUTAMINE
     Indication: Functional gastrointestinal disorder
     Dosage: UNK, 1 TEA SPOON, ONCE DAILY
     Route: 065

REACTIONS (2)
  - Weight increased [Not Recovered/Not Resolved]
  - Drug ineffective [Unknown]

NARRATIVE: CASE EVENT DATE: 20201119
